FAERS Safety Report 8030369-0 (Version None)
Quarter: 2012Q1

REPORT INFORMATION
  Report Type: 
  Country: None (occurrence: None)
  Receive Date: 20120109
  Receipt Date: 20120109
  Transmission Date: 20120608
  Serious: Yes (Other)
  Sender: FDA-Public Use
  Company Number: None

PATIENT
  Age: 41 Year
  Sex: Male
  Weight: 77.11 kg

DRUGS (1)
  1. NIXALL WOUND AND SKIN CARE [Suspect]
     Indication: LOCALISED INFECTION
     Dosage: SPRAYED DAILY
     Route: 061
     Dates: start: 20111110, end: 20111227

REACTIONS (4)
  - DRUG INEFFECTIVE [None]
  - FOOT AMPUTATION [None]
  - CONDITION AGGRAVATED [None]
  - INFECTION [None]
